FAERS Safety Report 8097235-6 (Version None)
Quarter: 2012Q1

REPORT INFORMATION
  Report Type: 
  Country: None (occurrence: None)
  Receive Date: 20120128
  Receipt Date: 20110803
  Transmission Date: 20120608
  Serious: No
  Sender: FDA-Public Use
  Company Number: US-ABBOTT-11P-163-0730987-00

PATIENT
  Age: 54 Year
  Sex: Female

DRUGS (8)
  1. SUPPLEMENTS [Concomitant]
     Indication: PRODUCT USED FOR UNKNOWN INDICATION
  2. LORTAB [Concomitant]
     Indication: PRODUCT USED FOR UNKNOWN INDICATION
  3. VITAMIN TAB [Concomitant]
     Indication: PRODUCT USED FOR UNKNOWN INDICATION
  4. HUMIRA [Suspect]
     Indication: PSORIASIS
     Dosage: 80 MG LOADING DOSE
     Dates: start: 20110603, end: 20110603
  5. MORPHINE [Concomitant]
     Indication: PRODUCT USED FOR UNKNOWN INDICATION
  6. KLONOPIN [Concomitant]
     Indication: PRODUCT USED FOR UNKNOWN INDICATION
     Dosage: AT BEDTIME
  7. FOLIC ACID [Concomitant]
     Indication: PRODUCT USED FOR UNKNOWN INDICATION
  8. MELATONIN [Concomitant]
     Indication: PRODUCT USED FOR UNKNOWN INDICATION
     Dosage: 3-5 MG AT BEDTIME

REACTIONS (12)
  - OEDEMA PERIPHERAL [None]
  - SENSATION OF HEAVINESS [None]
  - BLEPHAROSPASM [None]
  - HEADACHE [None]
  - PHOTOPSIA [None]
  - EYE PAIN [None]
  - BURNING SENSATION [None]
  - CHEST DISCOMFORT [None]
  - MIGRAINE [None]
  - FATIGUE [None]
  - NECK PAIN [None]
  - PAIN IN EXTREMITY [None]
